FAERS Safety Report 18784051 (Version 2)
Quarter: 2021Q1

REPORT INFORMATION
  Report Type: Spontaneous
  Country: US (occurrence: US)
  Receive Date: 20210125
  Receipt Date: 20210225
  Transmission Date: 20210419
  Serious: Yes (Death, Other)
  Sender: FDA-Public Use
  Company Number: US-PFIZER INC-2021045527

PATIENT
  Age: 76 Year
  Sex: Male

DRUGS (1)
  1. RETACRIT [Suspect]
     Active Substance: EPOETIN ALFA-EPBX
     Dosage: 40000 UNITS

REACTIONS (3)
  - Prostate cancer [Fatal]
  - Second primary malignancy [Unknown]
  - Bone cancer [Unknown]
